FAERS Safety Report 8479259-X (Version None)
Quarter: 2012Q2

REPORT INFORMATION
  Report Type: 
  Country: None (occurrence: None)
  Receive Date: 20120629
  Receipt Date: 20120622
  Transmission Date: 20120825
  Serious: Yes (Life-Threatening, Hospitalization, Disabling, Other)
  Sender: FDA-Public Use
  Company Number: US-GLAXOSMITHKLINE-A0974223A

PATIENT
  Age: 71 Year
  Sex: Female
  Weight: 83 kg

DRUGS (7)
  1. METHYLPREDNISOLONE [Concomitant]
  2. HALDOL [Concomitant]
     Indication: AGITATION
     Route: 048
  3. MELPHALAN HYDROCHLORIDE [Suspect]
     Indication: STEM CELL TRANSPLANT
     Dosage: 100MGM2 SEE DOSAGE TEXT
     Route: 042
     Dates: start: 20111025, end: 20111026
  4. EFFEXOR [Concomitant]
     Route: 048
  5. CITALOPRAM HYDROBROMIDE [Concomitant]
     Route: 048
  6. ATIVAN [Concomitant]
     Route: 048
  7. RISPERIDONE [Concomitant]
     Indication: AGITATION
     Dosage: 2MG AS REQUIRED
     Route: 048

REACTIONS (4)
  - PNEUMONITIS [None]
  - ATELECTASIS [None]
  - RESPIRATORY FAILURE [None]
  - LUNG INFILTRATION [None]
